FAERS Safety Report 7749965-0 (Version None)
Quarter: 2011Q3

REPORT INFORMATION
  Report Type: 
  Country: None (occurrence: None)
  Receive Date: 20110914
  Receipt Date: 20110906
  Transmission Date: 20111222
  Serious: Yes (Hospitalization)
  Sender: FDA-Public Use
  Company Number: JP-SANOFI-AVENTIS-2011SA058726

PATIENT
  Age: 61 Year
  Sex: Male
  Weight: 52 kg

DRUGS (14)
  1. LEUCOVORIN CALCIUM [Suspect]
     Indication: RECTAL CANCER
     Dosage: FORM: INFUSION
     Route: 041
     Dates: start: 20101213, end: 20110523
  2. EFUDEX [Suspect]
     Route: 041
     Dates: start: 20101213, end: 20110523
  3. AVASTIN [Suspect]
     Indication: RECTAL CANCER
     Route: 041
     Dates: start: 20101213, end: 20110523
  4. AVASTIN [Suspect]
     Route: 041
     Dates: start: 20110725, end: 20110725
  5. EFUDEX [Suspect]
     Indication: RECTAL CANCER
     Route: 040
     Dates: start: 20101213, end: 20110523
  6. OXALIPLATIN [Suspect]
     Indication: RECTAL CANCER
     Route: 041
     Dates: start: 20101213, end: 20110523
  7. OXALIPLATIN [Suspect]
     Route: 041
     Dates: start: 20110725, end: 20110725
  8. MAGNESIUM OXIDE [Concomitant]
     Indication: CONSTIPATION
     Route: 048
     Dates: start: 20101201, end: 20110806
  9. EFUDEX [Suspect]
     Route: 041
     Dates: start: 20110725, end: 20110725
  10. DAIKENTYUTO [Concomitant]
     Indication: CONSTIPATION
     Route: 048
     Dates: start: 20101201, end: 20110806
  11. LEUCOVORIN CALCIUM [Suspect]
     Route: 041
     Dates: start: 20110725, end: 20110725
  12. MUCOSTA [Concomitant]
     Indication: PROPHYLAXIS
     Route: 048
     Dates: start: 20101101, end: 20110602
  13. EFUDEX [Suspect]
     Route: 040
     Dates: start: 20110725, end: 20110725
  14. LOXOPROFEN [Suspect]
     Indication: PAIN IN EXTREMITY
     Route: 048
     Dates: start: 20101101, end: 20110602

REACTIONS (2)
  - DUODENAL PERFORATION [None]
  - SHOCK HAEMORRHAGIC [None]
